FAERS Safety Report 8583579-8 (Version None)
Quarter: 2012Q3

REPORT INFORMATION
  Report Type: 
  Country: None (occurrence: None)
  Receive Date: 20120809
  Receipt Date: 20120719
  Transmission Date: 20120928
  Serious: No
  Sender: FDA-Public Use
  Company Number: US-ASTRAZENECA-2012SE51034

PATIENT
  Age: 45 Year
  Sex: Male
  Weight: 59 kg

DRUGS (10)
  1. CLONIDINE [Concomitant]
     Indication: BLOOD PRESSURE ABNORMAL
  2. PROTONIX [Concomitant]
     Indication: GASTROOESOPHAGEAL REFLUX DISEASE
  3. SEROQUEL [Suspect]
     Indication: DEPRESSION
     Route: 048
     Dates: start: 19970101
  4. SEROQUEL [Suspect]
     Dosage: 800 MG IN MORNING, 800 MG AT BEDTIME AND 200 MG AT DAYTIME
     Route: 048
  5. IBUPROFEN [Concomitant]
     Indication: PAIN
  6. SEROQUEL [Suspect]
     Dosage: 800 MG IN MORNING, 800 MG AT BEDTIME AND 200 MG AT DAYTIME
     Route: 048
  7. SEROQUEL [Suspect]
     Indication: SCHIZOPHRENIA
     Route: 048
     Dates: start: 19970101
  8. TRAZODONE HYDROCHLORIDE [Concomitant]
     Indication: SLEEP DISORDER
  9. SEROQUEL [Suspect]
     Indication: PSYCHOTIC DISORDER
     Route: 048
     Dates: start: 19970101
  10. SEROQUEL [Suspect]
     Dosage: 800 MG IN MORNING, 800 MG AT BEDTIME AND 200 MG AT DAYTIME
     Route: 048

REACTIONS (5)
  - HUNGER [None]
  - BIPOLAR DISORDER [None]
  - INTENTIONAL DRUG MISUSE [None]
  - DYSLEXIA [None]
  - PARANOIA [None]
